FAERS Safety Report 5019464-8 (Version None)
Quarter: 2006Q2

REPORT INFORMATION
  Report Type: 
  Country: None (occurrence: None)
  Receive Date: 20060601
  Receipt Date: 20060519
  Transmission Date: 20061013
  Serious: No
  Sender: FDA-Public Use
  Company Number: 2006BI005090

PATIENT
  Age: 45 Year
  Sex: Female

DRUGS (1)
  1. AVONEX [Suspect]
     Indication: MULTIPLE SCLEROSIS
     Dosage: 30 UG; QW; IM
     Route: 030
     Dates: start: 20051230, end: 20060403

REACTIONS (9)
  - ACROCHORDON [None]
  - BREAST MICROCALCIFICATION [None]
  - CHANGE OF BOWEL HABIT [None]
  - COLON ADENOMA [None]
  - COLONIC POLYP [None]
  - FEELING COLD [None]
  - HAEMATOCHEZIA [None]
  - HOT FLUSH [None]
  - RECTAL HAEMORRHAGE [None]
